FAERS Safety Report 4495829-8 (Version None)
Quarter: 2004Q4

REPORT INFORMATION
  Report Type: 
  Country: None (occurrence: None)
  Receive Date: 20041108
  Receipt Date: 20040629
  Transmission Date: 20050328
  Serious: Yes (Life-Threatening)
  Sender: FDA-Public Use
  Company Number: JP-GLAXOSMITHKLINE-B0337529A

PATIENT
  Age: 78 Year
  Sex: Female
  Weight: 39 kg

DRUGS (7)
  1. PAXIL [Suspect]
     Indication: DEPRESSION
     Dosage: 10MG PER DAY
     Route: 048
     Dates: start: 20031112, end: 20031115
  2. DORAL [Suspect]
     Indication: INSOMNIA
     Dosage: 15MG PER DAY
     Route: 048
     Dates: start: 20031112, end: 20031116
  3. GASTER D [Concomitant]
     Indication: GASTRITIS
     Dosage: 40MG PER DAY
     Route: 048
  4. AMLODIN [Concomitant]
     Indication: HYPERTENSION
     Dosage: 5MG PER DAY
     Route: 048
  5. DIOVAN [Concomitant]
     Indication: HYPERTENSION
     Dosage: 80MG PER DAY
     Route: 048
  6. LIVACT [Concomitant]
     Indication: HEPATIC CIRRHOSIS
     Route: 048
  7. PURSENNID [Concomitant]
     Indication: CONSTIPATION
     Dosage: 24MG PER DAY
     Route: 048

REACTIONS (3)
  - DEPRESSED LEVEL OF CONSCIOUSNESS [None]
  - HYPONATRAEMIA [None]
  - INAPPROPRIATE ANTIDIURETIC HORMONE SECRETION [None]
